FAERS Safety Report 5876942-7 (Version None)
Quarter: 2008Q3

REPORT INFORMATION
  Report Type: 
  Country: None (occurrence: None)
  Receive Date: 20080908
  Receipt Date: 20080908
  Transmission Date: 20090109
  Serious: No
  Sender: FDA-Public Use
  Company Number: None

PATIENT
  Sex: Male

DRUGS (1)
  1. PAREGORIC LIQUID, USP  5ML/2MG ANHYDROUS MORPHINE  HI-TECH PHARMACAL [Suspect]
     Indication: DIARRHOEA
     Dosage: 473 ML  1-2 TSP 3X/DAY PO
     Route: 048
     Dates: start: 20080814, end: 20080906

REACTIONS (3)
  - DRUG EFFECT DECREASED [None]
  - PHARMACEUTICAL PRODUCT COMPLAINT [None]
  - POOR QUALITY DRUG ADMINISTERED [None]
